FAERS Safety Report 6239769-2 (Version None)
Quarter: 2009Q2

REPORT INFORMATION
  Report Type: 
  Country: None (occurrence: None)
  Receive Date: 20090623
  Receipt Date: 20080313
  Transmission Date: 20091009
  Serious: Yes (Hospitalization, Other)
  Sender: FDA-Public Use
  Company Number: US-ASTRAZENECA-2007UW18509

PATIENT
  Age: 13946 Day
  Sex: Female
  Weight: 103.9 kg

DRUGS (14)
  1. SEROQUEL [Suspect]
     Indication: BIPOLAR DISORDER
     Route: 048
     Dates: start: 20030401, end: 20070711
  2. SEROQUEL [Suspect]
     Indication: DEPRESSION
     Route: 048
     Dates: start: 20030401, end: 20070711
  3. SEROQUEL [Suspect]
     Route: 048
     Dates: start: 20030401, end: 20070711
  4. SEROQUEL [Suspect]
     Route: 048
     Dates: start: 20030401, end: 20070711
  5. SEROQUEL [Suspect]
     Dosage: 50 MG TO 300 MG
     Route: 048
     Dates: start: 20040330
  6. SEROQUEL [Suspect]
     Dosage: 50 MG TO 300 MG
     Route: 048
     Dates: start: 20040330
  7. ABILIFY [Concomitant]
     Dosage: TOTAL DAILY DOSE 20 MG
     Dates: start: 20070601
  8. ENALAPRIL [Concomitant]
     Dates: start: 20010729
  9. GLUCOTROL XL [Concomitant]
     Dates: start: 20010729
  10. METHYLDOPA [Concomitant]
     Dates: start: 20010729
  11. LEXAPRO [Concomitant]
     Dosage: 20 MG TO 30 MG
     Dates: start: 20040330
  12. INSULIN [Concomitant]
     Dosage: 20 UNITS TO 30 UNITS
     Dates: start: 20021008
  13. METFORMIN HCL [Concomitant]
     Dates: start: 20040330
  14. LIPITOR [Concomitant]
     Dates: start: 20010729

REACTIONS (5)
  - BLINDNESS [None]
  - DIABETES MELLITUS [None]
  - DIABETIC NEPHROPATHY [None]
  - EYE DISORDER [None]
  - TRANSFUSION [None]
